FAERS Safety Report 5974558-5 (Version None)
Quarter: 2008Q4

REPORT INFORMATION
  Report Type: 
  Country: None (occurrence: None)
  Receive Date: 20081201
  Receipt Date: 20081124
  Transmission Date: 20090506
  Serious: Yes (Other)
  Sender: FDA-Public Use
  Company Number: US-PFIZER INC-2008099758

PATIENT
  Sex: Female
  Weight: 83.9 kg

DRUGS (5)
  1. LIPITOR [Suspect]
     Indication: ARTERIOSCLEROSIS
     Dates: start: 19991101, end: 20080101
  2. LOVAZA [Concomitant]
  3. ANTIDIARRHOEAL MICROORGANISMS [Concomitant]
  4. COREG [Concomitant]
  5. ACETYLSALICYLIC ACID SRT [Concomitant]

REACTIONS (8)
  - ASTHENIA [None]
  - BODY HEIGHT DECREASED [None]
  - CORONARY ARTERY BYPASS [None]
  - GAIT DISTURBANCE [None]
  - HEARING IMPAIRED [None]
  - ILL-DEFINED DISORDER [None]
  - OSTEOPOROSIS [None]
  - WEIGHT DECREASED [None]
